FAERS Safety Report 4582308-2 (Version None)
Quarter: 2005Q1

REPORT INFORMATION
  Report Type: 
  Country: None (occurrence: None)
  Receive Date: 20050211
  Receipt Date: 20050211
  Transmission Date: 20050727
  Serious: Yes (Other)
  Sender: FDA-Public Use
  Company Number: None

PATIENT
  Sex: Male

DRUGS (2)
  1. NEURONTIN [Suspect]
     Dosage: 300 MG TWO HS
     Dates: start: 20041227, end: 20041231
  2. NEURONTIN [Suspect]
     Dosage: 300 MG TWO HS

REACTIONS (2)
  - DRUG HYPERSENSITIVITY [None]
  - PHARMACEUTICAL PRODUCT COMPLAINT [None]
